FAERS Safety Report 6772328-1 (Version None)
Quarter: 2010Q2

REPORT INFORMATION
  Report Type: 
  Country: None (occurrence: None)
  Receive Date: 20100616
  Receipt Date: 20091202
  Transmission Date: 20101027
  Serious: No
  Sender: FDA-Public Use
  Company Number: US-ASTRAZENECA-2009SE29973

PATIENT
  Age: 67 Year
  Sex: Female
  Weight: 85.7 kg

DRUGS (4)
  1. PULMICORT FLEXHALER [Suspect]
     Indication: ASTHMA
     Dosage: 360 MCG BID
     Route: 055
     Dates: start: 20090901
  2. PULMICORT FLEXHALER [Suspect]
     Indication: RESPIRATORY TRACT INFECTION
     Dosage: 360 MCG BID
     Route: 055
     Dates: start: 20090901
  3. BECONASE AQ [Concomitant]
     Indication: SINUSITIS
  4. XOPENEX [Concomitant]
     Indication: ASTHMA

REACTIONS (4)
  - DRY MOUTH [None]
  - DYSPHONIA [None]
  - INCORRECT DOSE ADMINISTERED [None]
  - INCREASED UPPER AIRWAY SECRETION [None]
